FAERS Safety Report 21260542 (Version 1)
Quarter: 2022Q3

REPORT INFORMATION
  Report Type: Report from Study
  Country: US (occurrence: US)
  Receive Date: 20220826
  Receipt Date: 20220826
  Transmission Date: 20221027
  Serious: Yes (Other)
  Sender: FDA-Public Use
  Company Number: US-ELI_LILLY_AND_COMPANY-US202208009248

PATIENT

DRUGS (5)
  1. GEMCITABINE HYDROCHLORIDE [Suspect]
     Active Substance: GEMCITABINE HYDROCHLORIDE
     Indication: Pancreatic carcinoma
     Dosage: 1000 MG/M2, ON DAYS 1, 8, 15- 28-DAY CYCLES
     Route: 042
  2. ALISERTIB [Suspect]
     Active Substance: ALISERTIB
     Indication: Pancreatic carcinoma
     Dosage: 20 MG, TWICE DAILY ON DAYS 1?3, 8?10, AND 15?17 OF A 28-DAY TREATMENT CYCLE
     Route: 048
  3. ALISERTIB [Suspect]
     Active Substance: ALISERTIB
     Dosage: 30 MG, TWICE DAILY ON DAYS 1?3, 8?10, AND 15?17 OF A 28-DAY TREATMENT CYCLE
     Route: 048
  4. ALISERTIB [Suspect]
     Active Substance: ALISERTIB
     Dosage: 40 MG, TWICE DAILY ON DAYS 1?3, 8?10, AND 15?17 OF A 28-DAY TREATMENT CYCLE
     Route: 048
  5. ALISERTIB [Suspect]
     Active Substance: ALISERTIB
     Dosage: 50 MG, TWICE DAILY ON DAYS 1?3, 8?10, AND 15?17 OF A 28-DAY TREATMENT CYCLE
     Route: 048

REACTIONS (2)
  - Febrile neutropenia [Unknown]
  - Mucosal inflammation [Unknown]
